FAERS Safety Report 11960054 (Version 2)
Quarter: 2016Q1

REPORT INFORMATION
  Report Type: Report from Study
  Country: US (occurrence: US)
  Receive Date: 20160126
  Receipt Date: 20160202
  Transmission Date: 20160526
  Serious: No
  Sender: FDA-Public Use
  Company Number: US-ABBVIE-15K-163-1354748-00

PATIENT
  Age: 27 Year
  Sex: Female

DRUGS (2)
  1. HUMIRA [Suspect]
     Active Substance: ADALIMUMAB
     Indication: PSORIASIS
     Route: 065
     Dates: start: 20140714
  2. HUMIRA [Suspect]
     Active Substance: ADALIMUMAB
     Indication: ANKYLOSING SPONDYLITIS

REACTIONS (7)
  - Injection site papule [Unknown]
  - Injection site erythema [Unknown]
  - Injection site erythema [Recovering/Resolving]
  - Injection site papule [Recovering/Resolving]
  - Injection site pruritus [Recovering/Resolving]
  - Injection site pruritus [Unknown]
  - Injection site induration [Recovering/Resolving]

NARRATIVE: CASE EVENT DATE: 20150223
